FAERS Safety Report 8111579-0 (Version None)
Quarter: 2012Q1

REPORT INFORMATION
  Report Type: 
  Country: None (occurrence: None)
  Receive Date: 20120203
  Receipt Date: 20120120
  Transmission Date: 20120608
  Serious: Yes (Hospitalization)
  Sender: FDA-Public Use
  Company Number: IT-RANBAXY-2012R1-52059

PATIENT
  Sex: Male

DRUGS (1)
  1. SIMVASTATIN [Suspect]
     Indication: PRODUCT USED FOR UNKNOWN INDICATION
     Dosage: UNK
     Route: 065

REACTIONS (6)
  - DISTURBANCE IN ATTENTION [None]
  - RHABDOMYOLYSIS [None]
  - PSYCHOMOTOR HYPERACTIVITY [None]
  - CONFUSIONAL STATE [None]
  - HYPOGLYCAEMIA [None]
  - NEUROTOXICITY [None]
